FAERS Safety Report 6104398-8 (Version None)
Quarter: 2009Q1

REPORT INFORMATION
  Report Type: 
  Country: None (occurrence: None)
  Receive Date: 20090302
  Receipt Date: 20090217
  Transmission Date: 20090719
  Serious: Yes (Other)
  Sender: FDA-Public Use
  Company Number: 1000004953

PATIENT
  Sex: Male

DRUGS (1)
  1. ESCITALOPRAM [Suspect]
     Dosage: 15 MG (15 MG, 1 IN 1 D), ORAL
     Route: 048

REACTIONS (1)
  - URINARY RETENTION [None]
